FAERS Safety Report 21258575 (Version 1)
Quarter: 2022Q3

REPORT INFORMATION
  Report Type: Other
  Country: RU (occurrence: None)
  Receive Date: 20220826
  Receipt Date: 20220826
  Transmission Date: 20221027
  Serious: Yes (Death)
  Sender: FDA-Public Use
  Company Number: RU-ROCHE-3163404

PATIENT
  Age: 58 Year
  Sex: Male

DRUGS (10)
  1. ACTEMRA [Suspect]
     Active Substance: TOCILIZUMAB
     Indication: COVID-19 pneumonia
     Route: 042
  2. ACTEMRA [Suspect]
     Active Substance: TOCILIZUMAB
     Indication: Cytokine storm
  3. UMIFENOVIR [Concomitant]
     Active Substance: UMIFENOVIR
  4. NADROPARIN CALCIUM [Concomitant]
     Active Substance: NADROPARIN CALCIUM
  5. DEXAMETHASONE [Concomitant]
     Active Substance: DEXAMETHASONE
  6. ASCORBIC ACID [Concomitant]
     Active Substance: ASCORBIC ACID
  7. RIBAVIRIN [Concomitant]
     Active Substance: RIBAVIRIN
  8. NIMESULIDE [Concomitant]
     Active Substance: NIMESULIDE
  9. MOXIFLOXACIN [Concomitant]
     Active Substance: MOXIFLOXACIN
  10. CEFTRIAXONE [Concomitant]
     Active Substance: CEFTRIAXONE

REACTIONS (2)
  - COVID-19 [Fatal]
  - Off label use [Unknown]
